FAERS Safety Report 21084813 (Version 8)
Quarter: 2022Q3

REPORT INFORMATION
  Report Type: Report from Study
  Country: CN (occurrence: CN)
  Receive Date: 20220714
  Receipt Date: 20220922
  Transmission Date: 20221027
  Serious: Yes (Death, Life-Threatening, Other)
  Sender: FDA-Public Use
  Company Number: CN-BRISTOL-MYERS SQUIBB COMPANY-2022-072635

PATIENT
  Age: 65 Year
  Sex: Male
  Weight: 76 kg

DRUGS (7)
  1. CARBOPLATIN [Suspect]
     Active Substance: CARBOPLATIN
     Indication: Non-small cell lung cancer
     Dosage: PRIOR TO THE ONSET OF THE EVENTS, THE PATIENT RECEIVED HIS MOST RECENT DOSE OF 520 MG ON 24-MAR-2022
     Route: 065
     Dates: start: 20220125
  2. CARBOPLATIN [Suspect]
     Active Substance: CARBOPLATIN
     Route: 065
     Dates: start: 20220324
  3. PEMETREXED DISODIUM [Suspect]
     Active Substance: PEMETREXED DISODIUM
     Indication: Non-small cell lung cancer
     Dosage: PRIOR TO THE ONSET OF THE EVENTS, THE PATIENT RECEIVED HIS MOST RECENT DOSE OF 925 MG ON 24-MAR-2022
     Route: 065
     Dates: start: 20220125
  4. PEMETREXED DISODIUM [Suspect]
     Active Substance: PEMETREXED DISODIUM
     Route: 065
     Dates: start: 20220324
  5. INDAPAMIDE [Concomitant]
     Active Substance: INDAPAMIDE
     Indication: Product used for unknown indication
     Dosage: DAILY; PER DAY
     Route: 048
     Dates: start: 2012
  6. CALCIUM CARBONATE\CHOLECALCIFEROL [Concomitant]
     Active Substance: CALCIUM CARBONATE\CHOLECALCIFEROL
     Indication: Product used for unknown indication
     Dosage: DAILY; PER DAY
     Route: 048
     Dates: start: 20220120
  7. FOLIC ACID [Concomitant]
     Active Substance: FOLIC ACID
     Indication: Prophylaxis
     Dosage: DAILY; PER DAY
     Route: 048
     Dates: start: 20220120

REACTIONS (2)
  - Pneumonia [Fatal]
  - Pneumonitis [Fatal]

NARRATIVE: CASE EVENT DATE: 20220709
